FAERS Safety Report 19159994 (Version 1)
Quarter: 2021Q2

REPORT INFORMATION
  Report Type: Spontaneous
  Country: US (occurrence: US)
  Receive Date: 20210421
  Receipt Date: 20210421
  Transmission Date: 20210717
  Serious: Yes (Other)
  Sender: FDA-Public Use
  Company Number: US-ABBVIE-21K-163-3858405-00

PATIENT
  Age: 68 Year
  Sex: Female
  Weight: 51.3 kg

DRUGS (3)
  1. NAPROXEN. [Concomitant]
     Active Substance: NAPROXEN
     Indication: RHEUMATOID ARTHRITIS
  2. HUMIRA [Suspect]
     Active Substance: ADALIMUMAB
     Indication: RHEUMATOID ARTHRITIS
     Route: 058
     Dates: start: 20191107, end: 20191219
  3. FLECAINIDE [Concomitant]
     Active Substance: FLECAINIDE
     Indication: RHEUMATOID ARTHRITIS

REACTIONS (20)
  - Tooth fracture [Recovered/Resolved]
  - Erythema [Recovering/Resolving]
  - Eye disorder [Recovering/Resolving]
  - Pruritus [Recovering/Resolving]
  - Dry eye [Not Recovered/Not Resolved]
  - Dry mouth [Recovered/Resolved]
  - Swelling [Recovering/Resolving]
  - Anaemia [Recovering/Resolving]
  - Tinnitus [Recovering/Resolving]
  - Dry skin [Recovering/Resolving]
  - Skin disorder [Recovering/Resolving]
  - Joint range of motion decreased [Recovering/Resolving]
  - Stomatitis [Recovered/Resolved]
  - Rash erythematous [Recovering/Resolving]
  - Adverse drug reaction [Unknown]
  - Dry skin [Recovering/Resolving]
  - Oral disorder [Recovered/Resolved]
  - Oral mucosal roughening [Recovered/Resolved]
  - Dental caries [Recovered/Resolved]
  - Sjogren^s syndrome [Recovered/Resolved]

NARRATIVE: CASE EVENT DATE: 201911
